FAERS Safety Report 5068864-9 (Version None)
Quarter: 2006Q3

REPORT INFORMATION
  Report Type: 
  Country: None (occurrence: None)
  Receive Date: 20060802
  Receipt Date: 20060509
  Transmission Date: 20061208
  Serious: No
  Sender: FDA-Public Use
  Company Number: US-BRISTOL-MYERS SQUIBB COMPANY-13373089

PATIENT
  Age: 40 Year
  Sex: Male
  Weight: 141 kg

DRUGS (13)
  1. COUMADIN [Suspect]
     Indication: ATRIAL FLUTTER
     Dosage: 10 - 12.5 MG DAILY 2004 - JAN-2006, RESTARTED 12.5 MG DAILY 21-APR-2006
     Route: 048
     Dates: start: 20040101
  2. ZOLOFT [Concomitant]
  3. DIGOXIN [Concomitant]
  4. FUROSEMIDE [Concomitant]
  5. ZOCOR [Concomitant]
  6. LEVOTHYROXINE SODIUM [Concomitant]
  7. NEXIUM [Concomitant]
  8. DIOVAN [Concomitant]
  9. COREG [Concomitant]
  10. LANTUS [Concomitant]
  11. HUMULIN INSULIN [Concomitant]
  12. INSPRA [Concomitant]
  13. JANTOVEN [Concomitant]
     Indication: ATRIAL FLUTTER
     Route: 048
     Dates: start: 20060101, end: 20060420

REACTIONS (1)
  - INTERNATIONAL NORMALISED RATIO FLUCTUATION [None]
